FAERS Safety Report 9626364 (Version 3)
Quarter: 2014Q1

REPORT INFORMATION
  Report Type: Report from Study
  Country: CO (occurrence: CO)
  Receive Date: 20131016
  Receipt Date: 20140113
  Transmission Date: 20141002
  Serious: Yes (Death, Hospitalization, Other)
  Sender: FDA-Public Use
  Company Number: CO-ASTRAZENECA-2013SE74421

PATIENT
  Age: 92 Year
  Sex: Female

DRUGS (8)
  1. BRILINTA [Suspect]
     Indication: ACUTE CORONARY SYNDROME
     Route: 048
     Dates: start: 20130717, end: 20131004
  2. CLOPIDOGREL [Suspect]
     Route: 048
     Dates: start: 20131005
  3. ASA [Concomitant]
     Route: 048
  4. OMEPRAZOL [Concomitant]
     Route: 048
  5. LOSARTAN [Concomitant]
     Route: 048
     Dates: start: 20130717
  6. METOPROLOL [Concomitant]
     Route: 048
     Dates: start: 20130717
  7. ACETAMINOPHEN [Concomitant]
     Route: 048
  8. FUROSEMIDE [Concomitant]
     Route: 048

REACTIONS (3)
  - Acute myocardial infarction [Fatal]
  - Decreased appetite [Not Recovered/Not Resolved]
  - Therapy cessation [Unknown]
